FAERS Safety Report 4828539-5 (Version None)
Quarter: 2005Q4

REPORT INFORMATION
  Report Type: 
  Country: None (occurrence: None)
  Receive Date: 20051110
  Receipt Date: 20051031
  Transmission Date: 20060501
  Serious: Yes (Other)
  Sender: FDA-Public Use
  Company Number: 2005014818

PATIENT
  Age: 45 Year
  Sex: Female
  Weight: 54.4316 kg

DRUGS (5)
  1. DILANTIN KAPSEAL [Suspect]
     Indication: CONVULSION
     Dosage: 400 MG (BID), ORAL
     Route: 048
     Dates: start: 19920101
  2. AUGMENTIN '125' [Suspect]
     Indication: SINUSITIS
     Dosage: 2000 MG9BIB
     Dates: start: 20040224, end: 20040201
  3. PROMETRIUM [Suspect]
     Indication: ILL-DEFINED DISORDER
     Dates: end: 20050101
  4. ATIVAN [Concomitant]
  5. MULTIVITAMINS (MULTIVIRAMINS) [Concomitant]

REACTIONS (6)
  - ANTICONVULSANT TOXICITY [None]
  - DRUG INTERACTION [None]
  - HERPES ZOSTER [None]
  - PETIT MAL EPILEPSY [None]
  - PHARMACEUTICAL PRODUCT COMPLAINT [None]
  - SINUSITIS [None]
